FAERS Safety Report 18046305 (Version 1)
Quarter: 2020Q3

REPORT INFORMATION
  Report Type: Spontaneous
  Country: RO (occurrence: RO)
  Receive Date: 20200721
  Receipt Date: 20200721
  Transmission Date: 20201103
  Serious: Yes (Other)
  Sender: FDA-Public Use
  Company Number: RO-ABBVIE-20K-135-3486363-00

PATIENT
  Age: 74 Year
  Sex: Male
  Weight: 80 kg

DRUGS (9)
  1. HUMIRA [Suspect]
     Active Substance: ADALIMUMAB
     Indication: PSORIATIC ARTHROPATHY
     Route: 058
     Dates: start: 201206
  2. DETRALEX [Concomitant]
     Active Substance: DIOSMIN\HESPERIDIN
     Indication: PERIPHERAL VENOUS DISEASE
     Dates: start: 2012
  3. BETALOC [Concomitant]
     Active Substance: METOPROLOL TARTRATE
     Indication: ATRIAL FIBRILLATION
  4. HUMIRA [Suspect]
     Active Substance: ADALIMUMAB
     Indication: PSORIASIS
  5. BETALOC [Concomitant]
     Active Substance: METOPROLOL TARTRATE
     Indication: BUNDLE BRANCH BLOCK RIGHT
  6. SINTROM [Concomitant]
     Active Substance: ACENOCOUMAROL
     Indication: MYOCARDIAL ISCHAEMIA
     Dates: start: 202005
  7. BETALOC [Concomitant]
     Active Substance: METOPROLOL TARTRATE
     Indication: MYOCARDIAL ISCHAEMIA
     Dates: start: 202005
  8. SINTROM [Concomitant]
     Active Substance: ACENOCOUMAROL
     Indication: BUNDLE BRANCH BLOCK RIGHT
  9. SINTROM [Concomitant]
     Active Substance: ACENOCOUMAROL
     Indication: ATRIAL FIBRILLATION

REACTIONS (4)
  - Atrial fibrillation [Unknown]
  - Depression [Not Recovered/Not Resolved]
  - Myocardial ischaemia [Unknown]
  - Bundle branch block right [Unknown]

NARRATIVE: CASE EVENT DATE: 2017
